FAERS Safety Report 7806075-1 (Version None)
Quarter: 2011Q4

REPORT INFORMATION
  Report Type: 
  Country: None (occurrence: None)
  Receive Date: 20111007
  Receipt Date: 20111007
  Transmission Date: 20120403
  Serious: No
  Sender: FDA-Public Use
  Company Number: None

PATIENT
  Age: 66 Year
  Sex: Female
  Weight: 87.5442 kg

DRUGS (1)
  1. HUMALOG 75/25 [Suspect]
     Indication: BLOOD GLUCOSE
     Dosage: 16-18- UNIT 2-TIME DAY
     Dates: start: 20110801, end: 20110901

REACTIONS (1)
  - ALOPECIA [None]
